FAERS Safety Report 20462201 (Version 1)
Quarter: 2022Q1

REPORT INFORMATION
  Report Type: Spontaneous
  Country: US (occurrence: US)
  Receive Date: 20220211
  Receipt Date: 20220211
  Transmission Date: 20220423
  Serious: No
  Sender: FDA-Public Use
  Company Number: US-EPIHEALTH-2021-US-007582

PATIENT
  Age: 32 Year
  Sex: Female
  Weight: 43.55 kg

DRUGS (1)
  1. RHOFADE [Suspect]
     Active Substance: OXYMETAZOLINE HYDROCHLORIDE
     Indication: Therapeutic skin care topical
     Dosage: 2 TIMES ONLY
     Route: 061
     Dates: start: 20210328, end: 20210329

REACTIONS (6)
  - Application site erythema [Recovered/Resolved]
  - Application site discolouration [Recovered/Resolved]
  - Application site discomfort [Recovered/Resolved]
  - Application site vesicles [Recovered/Resolved]
  - Dizziness [Recovered/Resolved]
  - Application site swelling [Recovered/Resolved]

NARRATIVE: CASE EVENT DATE: 20210329
